FAERS Safety Report 9684411 (Version 1)
Quarter: 2013Q4

REPORT INFORMATION
  Report Type: Spontaneous
  Country: US (occurrence: US)
  Receive Date: 20131112
  Receipt Date: 20131112
  Transmission Date: 20140711
  Serious: No
  Sender: FDA-Public Use
  Company Number: US-PFIZER INC-2013322791

PATIENT
  Sex: Male

DRUGS (1)
  1. LYRICA [Suspect]
     Dosage: UNK
     Dates: start: 20131107

REACTIONS (5)
  - Somnolence [Unknown]
  - Dizziness [Unknown]
  - Lethargy [Unknown]
  - Erythema [Unknown]
  - Fatigue [Unknown]
